FAERS Safety Report 5209458-1 (Version None)
Quarter: 2007Q1

REPORT INFORMATION
  Report Type: 
  Country: None (occurrence: None)
  Receive Date: 20070116
  Receipt Date: 20070105
  Transmission Date: 20070707
  Serious: Yes (Hospitalization, Other)
  Sender: FDA-Public Use
  Company Number: US-PFIZER INC-2007002288

PATIENT

DRUGS (1)
  1. GEODON [Suspect]

REACTIONS (1)
  - PSYCHIATRIC SYMPTOM [None]
